FAERS Safety Report 5406264-X (Version None)
Quarter: 2007Q3

REPORT INFORMATION
  Report Type: 
  Country: None (occurrence: None)
  Receive Date: 20070806
  Receipt Date: 20070724
  Transmission Date: 20080115
  Serious: Yes (Life-Threatening, Other)
  Sender: FDA-Public Use
  Company Number: US-JNJFOC-20070706884

PATIENT
  Age: 29 Month
  Sex: Male
  Weight: 13.7 kg

DRUGS (1)
  1. ACETAMINOPHEN AND CODEINE [Suspect]
     Indication: PROCEDURAL PAIN
     Route: 048

REACTIONS (3)
  - APNOEA [None]
  - BRAIN DAMAGE [None]
  - DRUG TOXICITY [None]
